FAERS Safety Report 23832830 (Version 2)
Quarter: 2024Q3

REPORT INFORMATION
  Report Type: Report from Study
  Country: US (occurrence: US)
  Receive Date: 20240508
  Receipt Date: 20240924
  Transmission Date: 20241016
  Serious: No
  Sender: SANOFI AVENTIS
  Company Number: US-SA-SAC20240503001308

PATIENT
  Age: 58 Year
  Sex: Female

DRUGS (1)
  1. ALTUVIIIO [Suspect]
     Active Substance: EFANESOCTOCOG ALFA
     Indication: Factor VIII deficiency
     Dosage: 3750 IU, QW
     Route: 042
     Dates: end: 202406

REACTIONS (3)
  - Traumatic haemorrhage [Recovered/Resolved]
  - Limb injury [Unknown]
  - Insurance issue [Unknown]

NARRATIVE: CASE EVENT DATE: 20240416
